FAERS Safety Report 24868630 (Version 2)
Quarter: 2025Q1

REPORT INFORMATION
  Report Type: Spontaneous
  Country: US (occurrence: US)
  Receive Date: 20250121
  Receipt Date: 20250128
  Transmission Date: 20250409
  Serious: No
  Sender: GUERBET
  Company Number: US-GUERBET / LLC-US-20240170

PATIENT
  Age: 76 Year
  Sex: Female
  Weight: 74.3 kg

DRUGS (1)
  1. DOTAREM [Suspect]
     Active Substance: GADOTERATE MEGLUMINE
     Indication: Magnetic resonance imaging
     Route: 042
     Dates: start: 20241028, end: 20241028

REACTIONS (1)
  - Rash [Unknown]

NARRATIVE: CASE EVENT DATE: 20241028
